FAERS Safety Report 13570951 (Version 1)
Quarter: 2017Q2

REPORT INFORMATION
  Report Type: Spontaneous
  Country: US (occurrence: US)
  Receive Date: 20170523
  Receipt Date: 20170523
  Transmission Date: 20170830
  Serious: No
  Sender: FDA-Public Use
  Company Number: US-TEVA-732074ACC

PATIENT
  Age: 37 Year
  Sex: Female
  Weight: 72 kg

DRUGS (1)
  1. ZOVIA [Suspect]
     Active Substance: ETHINYL ESTRADIOL\ETHYNODIOL DIACETATE
     Indication: HORMONE THERAPY
     Dosage: DOSE STRENGTH:  1 MG/0.035 MG
     Dates: start: 20161218

REACTIONS (6)
  - Off label use [Unknown]
  - Weight increased [Unknown]
  - Product use in unapproved indication [Unknown]
  - Hot flush [Unknown]
  - Swelling [Unknown]
  - Irritability [Unknown]

NARRATIVE: CASE EVENT DATE: 20170111
